FAERS Safety Report 4289892-7 (Version None)
Quarter: 2004Q1

REPORT INFORMATION
  Report Type: 
  Country: None (occurrence: None)
  Receive Date: 20040206
  Receipt Date: 20040127
  Transmission Date: 20041129
  Serious: Yes (Death)
  Sender: FDA-Public Use
  Company Number: 103871ISR

PATIENT
  Age: 56 Year
  Sex: Female

DRUGS (6)
  1. CISPLATIN [Suspect]
     Indication: GASTRIC CANCER
     Dosage: 50 MG/M2, INTRAVENOUS (NOS)
     Route: 042
     Dates: start: 20040122
  2. FLUOROURACIL [Suspect]
     Indication: GASTRIC CANCER
     Dosage: 2000 MG/M2, INTRAVENOUS (NOS)
     Route: 042
     Dates: start: 20040122
  3. FOLINIC ACID [Suspect]
     Indication: GASTRIC CANCER
     Dosage: 500 MG/M2, INTRAVENOUS (NOS)
     Route: 042
     Dates: start: 20040122
  4. THEOPHYLLINE [Concomitant]
  5. ZOLPIDEM [Concomitant]
  6. GRANISETRON [Concomitant]

REACTIONS (2)
  - CHEST PAIN [None]
  - HEADACHE [None]
